FAERS Safety Report 22627371 (Version 1)
Quarter: 2023Q2

REPORT INFORMATION
  Report Type: Spontaneous
  Country: US (occurrence: None)
  Receive Date: 20230622
  Receipt Date: 20230622
  Transmission Date: 20230721
  Serious: Yes (Hospitalization)
  Sender: FDA-Public Use
  Company Number: US-ROCHE-3372440

PATIENT
  Age: 52 Year
  Sex: Male

DRUGS (1)
  1. HEMLIBRA [Suspect]
     Active Substance: EMICIZUMAB-KXWH
     Indication: Factor VIII deficiency
     Dosage: STRENGTH- 60MG/0.4 ML
     Route: 058
     Dates: start: 202212

REACTIONS (5)
  - Accident [Unknown]
  - Fall [Unknown]
  - Wrist fracture [Unknown]
  - Ligament sprain [Unknown]
  - Rib fracture [Unknown]

NARRATIVE: CASE EVENT DATE: 20230609
